FAERS Safety Report 9409521 (Version 2)
Quarter: 2013Q3

REPORT INFORMATION
  Report Type: Spontaneous
  Country: GB (occurrence: GB)
  Receive Date: 20130719
  Receipt Date: 20130819
  Transmission Date: 20140515
  Serious: Yes (Other)
  Sender: FDA-Public Use
  Company Number: GB-SANOFI-AVENTIS-2013SA071421

PATIENT
  Age: 70 Year
  Sex: Female

DRUGS (4)
  1. LANTUS [Suspect]
     Indication: DIABETES MELLITUS
     Dosage: DOSE:20 UNIT(S)
     Route: 058
     Dates: start: 200801
  2. LANTUS [Suspect]
     Indication: DIABETES MELLITUS
     Dosage: DOSE:20 UNIT(S)
     Route: 058
  3. EXENATIDE [Suspect]
     Indication: DIABETES MELLITUS
     Route: 058
     Dates: start: 201201
  4. NOVORAPID [Suspect]
     Indication: DIABETES MELLITUS
     Route: 058
     Dates: start: 200708, end: 201303

REACTIONS (3)
  - Loss of consciousness [Not Recovered/Not Resolved]
  - Seizure like phenomena [Unknown]
  - Palpitations [Unknown]
